FAERS Safety Report 16653335 (Version 1)
Quarter: 2019Q3

REPORT INFORMATION
  Report Type: Report from Study
  Country: None (occurrence: CO)
  Receive Date: 20190731
  Receipt Date: 20190731
  Transmission Date: 20191004
  Serious: Yes (Hospitalization, Other)
  Sender: FDA-Public Use
  Company Number: CO-ABBVIE-19K-036-2872362-00

PATIENT
  Age: 24 Year
  Sex: Male
  Weight: 24 kg

DRUGS (2)
  1. METHOTREXATE. [Suspect]
     Active Substance: METHOTREXATE
     Indication: JUVENILE IDIOPATHIC ARTHRITIS
     Route: 065
  2. HUMIRA [Suspect]
     Active Substance: ADALIMUMAB
     Indication: JUVENILE IDIOPATHIC ARTHRITIS
     Route: 058
     Dates: start: 20170912, end: 20190708

REACTIONS (5)
  - Haematochezia [Recovering/Resolving]
  - Arthralgia [Recovering/Resolving]
  - Hepatic cirrhosis [Recovering/Resolving]
  - Vomiting [Recovering/Resolving]
  - Varices oesophageal [Recovering/Resolving]

NARRATIVE: CASE EVENT DATE: 201906
